FAERS Safety Report 13791348 (Version 4)
Quarter: 2017Q3

REPORT INFORMATION
  Report Type: Spontaneous
  Country: JP (occurrence: JP)
  Receive Date: 20170725
  Receipt Date: 20170804
  Transmission Date: 20171127
  Serious: Yes (Other)
  Sender: FDA-Public Use
  Company Number: PHJP2017JP023344

PATIENT
  Age: 3 Year
  Sex: Male
  Weight: 10.8 kg

DRUGS (5)
  1. CICLOSPORIN [Suspect]
     Active Substance: CYCLOSPORINE
     Dosage: UNK
     Route: 065
  2. CICLOSPORIN [Suspect]
     Active Substance: CYCLOSPORINE
     Indication: LYMPHOHISTIOCYTOSIS
     Dosage: 3 MG/KG, QD
     Route: 065
  3. DEXA [Concomitant]
     Active Substance: DEXAMETHASONE
     Indication: LYMPHOHISTIOCYTOSIS
     Dosage: 10 MG/M2, QD
     Route: 065
  4. ETOPOSIDE. [Concomitant]
     Active Substance: ETOPOSIDE
     Dosage: 150 MG/M2, QW
     Route: 065
  5. ETOPOSIDE. [Concomitant]
     Active Substance: ETOPOSIDE
     Indication: LYMPHOHISTIOCYTOSIS
     Dosage: 150 MG/M2, BIW
     Route: 065

REACTIONS (2)
  - Product use in unapproved indication [Unknown]
  - Renal tubular disorder [Unknown]
